FAERS Safety Report 12612302 (Version 1)
Quarter: 2016Q3

REPORT INFORMATION
  Report Type: Report from Study
  Country: GB (occurrence: GB)
  Receive Date: 20160801
  Receipt Date: 20160801
  Transmission Date: 20161109
  Serious: Yes (Other)
  Sender: FDA-Public Use
  Company Number: PHFR2016GB006193

PATIENT
  Age: 38 Year
  Sex: Male

DRUGS (1)
  1. GILENYA [Suspect]
     Active Substance: FINGOLIMOD HYDROCHLORIDE
     Indication: RELAPSING-REMITTING MULTIPLE SCLEROSIS
     Dosage: 0.5 MG, UNK
     Route: 065
     Dates: start: 20140404

REACTIONS (13)
  - Central nervous system lesion [Unknown]
  - Lymphopenia [Unknown]
  - Micturition urgency [Unknown]
  - Pollakiuria [Unknown]
  - Neutrophil count decreased [Unknown]
  - Paraesthesia [Unknown]
  - Dysuria [Unknown]
  - Productive cough [Unknown]
  - Vitreous detachment [Unknown]
  - Oropharyngeal pain [Unknown]
  - Urinary hesitation [Unknown]
  - White blood cell count decreased [Unknown]
  - Flatulence [Not Recovered/Not Resolved]

NARRATIVE: CASE EVENT DATE: 20140717
